FAERS Safety Report 5119224-3 (Version None)
Quarter: 2006Q4

REPORT INFORMATION
  Report Type: 
  Country: None (occurrence: None)
  Receive Date: 20061003
  Receipt Date: 20060927
  Transmission Date: 20070319
  Serious: Yes (Other)
  Sender: FDA-Public Use
  Company Number: US-JNJFOC-20060906376

PATIENT
  Sex: Male

DRUGS (8)
  1. RISPERDAL [Suspect]
     Route: 048
  2. RISPERDAL [Suspect]
     Indication: SCHIZOPHRENIA
     Route: 048
  3. NEFEDIPINE [Concomitant]
  4. BENADRYL [Concomitant]
  5. METAMUCIL [Concomitant]
  6. ATTAPULGITE [Concomitant]
  7. TRIAMCINOLONE [Concomitant]
  8. HYDROCORTIZONE CREAM [Concomitant]

REACTIONS (2)
  - CARDIAC DISORDER [None]
  - DIABETES MELLITUS [None]
